FAERS Safety Report 12922674 (Version 1)
Quarter: 2016Q4

REPORT INFORMATION
  Report Type: Spontaneous
  Country: CA (occurrence: US)
  Receive Date: 20161108
  Receipt Date: 20161108
  Transmission Date: 20170207
  Serious: No
  Sender: FDA-Public Use
  Company Number: None

PATIENT
  Age: 49 Year
  Sex: Male
  Weight: 90 kg

DRUGS (1)
  1. ARM AND HAMMER TOOTHPASTE [Suspect]
     Active Substance: SODIUM FLUORIDE
     Indication: TOOTH DISCOLOURATION
     Dates: start: 20161031, end: 20161106

REACTIONS (2)
  - Oral mucosal exfoliation [None]
  - Oral mucosal blistering [None]

NARRATIVE: CASE EVENT DATE: 20161103
